FAERS Safety Report 9951514 (Version 2)
Quarter: 2014Q1

REPORT INFORMATION
  Report Type: Report from Study
  Country: SE (occurrence: SE)
  Receive Date: 20140304
  Receipt Date: 20140304
  Transmission Date: 20141002
  Serious: Yes (Other)
  Sender: FDA-Public Use
  Company Number: SE-OTSUKA-EU-2011-10128

PATIENT
  Sex: Male
  Weight: 61 kg

DRUGS (14)
  1. SAMSCA [Suspect]
     Indication: INAPPROPRIATE ANTIDIURETIC HORMONE SECRETION
     Dosage: 7.5 MG MILLIGRAM(S), DAILY DOSE
     Route: 065
     Dates: start: 20110709, end: 20110710
  2. SALINE [Concomitant]
     Dosage: 154 MMOL MILLIMOLE(S), SINGLE
     Dates: start: 20110709
  3. CILAXORAL [Concomitant]
     Indication: CONSTIPATION
     Dosage: 10 GTT DROP(S), DAILY DOSE
     Route: 048
     Dates: start: 20110705
  4. OMEPRAZOL [Concomitant]
     Indication: GASTRIC ULCER
     Dosage: 20 MG MILLIGRAM(S), DAILY DOSE
     Route: 048
     Dates: start: 20110705
  5. LACTULOSE [Concomitant]
     Indication: CONSTIPATION
     Dosage: 20 UNK, DAILY DOSE
     Route: 048
     Dates: start: 20110705
  6. BEHEPAN [Concomitant]
     Indication: VITAMIN B1 DEFICIENCY
     Dosage: 1 MG MILLIGRAM(S), DAILY DOSE
     Route: 048
  7. FOLACIN [Concomitant]
     Indication: FOLATE DEFICIENCY
     Dosage: 5 MG MILLIGRAM(S), DAILY DOSE
     Route: 048
  8. FELODIPIN [Concomitant]
     Indication: HYPERTENSION
     Dosage: 5 MG MILLIGRAM(S), DAILY DOSE
     Route: 048
  9. EMOVAT [Concomitant]
     Indication: BALANOPOSTHITIS
     Dosage: 2 UNKNOWN, DAILY DOSE
     Route: 003
     Dates: start: 20110707
  10. VALACICLOVIR [Concomitant]
     Indication: HERPES ZOSTER
     Dosage: 3 G GRAM(S), DAILY DOSE
     Route: 048
     Dates: start: 20110707
  11. OXASCAND [Concomitant]
     Indication: SEDATION
     Dosage: 30 MG MILLIGRAM(S), DAILY DOSE
     Route: 048
  12. SAROTEN [Concomitant]
     Indication: NEURALGIA
     Dosage: 15 MG MILLIGRAM(S), DAILY DOSE
     Route: 048
     Dates: start: 20110706
  13. TRAMADOL [Concomitant]
     Indication: NEURALGIA
     Dosage: 100 MG MILLIGRAM(S), DAILY DOSE
     Route: 048
     Dates: start: 20110706
  14. IMOVANE [Concomitant]
     Indication: SLEEP DISORDER
     Dosage: 7.5 MG MILLIGRAM(S), DAILY DOSE
     Route: 048

REACTIONS (3)
  - Blood creatinine increased [Recovered/Resolved]
  - Wrong technique in drug usage process [Unknown]
  - Wrong technique in drug usage process [None]
